FAERS Safety Report 4747805-5 (Version None)
Quarter: 2005Q3

REPORT INFORMATION
  Report Type: 
  Country: None (occurrence: None)
  Receive Date: 20050817
  Receipt Date: 20050817
  Transmission Date: 20060218
  Serious: Yes (Hospitalization)
  Sender: FDA-Public Use
  Company Number: None

PATIENT
  Age: 49 Year
  Sex: Male
  Weight: 55.7924 kg

DRUGS (7)
  1. ERBITUX [Suspect]
     Indication: OROPHARYNGEAL CANCER STAGE UNSPECIFIED
     Dosage: 250MG/M2   WEEKLY   INTRAVENOU
     Route: 042
     Dates: start: 20050705, end: 20050809
  2. ZOSYN [Concomitant]
  3. TOBRAMYCIN [Concomitant]
  4. VANCOMYCIN [Concomitant]
  5. FLUIDS [Concomitant]
  6. CARBOPLATIN [Concomitant]
  7. TAXOL [Concomitant]

REACTIONS (7)
  - ABDOMINAL PAIN [None]
  - PNEUMONIA [None]
  - STAPHYLOCOCCAL INFECTION [None]
  - SUBCUTANEOUS ABSCESS [None]
  - TACHYCARDIA [None]
  - TACHYPNOEA [None]
  - VOMITING [None]
